FAERS Safety Report 9515120 (Version 1)
Quarter: 2013Q1

REPORT INFORMATION
  Report Type: Spontaneous
  Country: US (occurrence: None)
  Receive Date: 20130305
  Receipt Date: 20130305
  Transmission Date: 20140127
  Serious: Yes (Hospitalization, Other)
  Sender: FDA-Public Use
  Company Number: 163-21880-12103608

PATIENT
  Age: 87 Year
  Sex: Female

DRUGS (9)
  1. REVLIMID (LENALIDOMIDE) (CAPSULES) [Suspect]
     Indication: MYELODYSPLASTIC SYNDROME
     Dosage: 10 MG, 2 IN 1 WK, PO
     Route: 048
     Dates: start: 200707, end: 20121015
  2. PLAVIX (CLOPIDOGREL SULFATE) (UNKNOWN) [Concomitant]
  3. METOPROLOL (METOPROLOL) (UNKNOWN) [Concomitant]
  4. LASIX (FUROSEDMIDE) (UNKNOWN) [Concomitant]
  5. KLOR-CON (POTASSIUM CHLORIDE) (UNKNOWN) [Concomitant]
  6. ALLOPURINOL (ALLOPURINOL) (UNKNOWN) [Concomitant]
  7. LOVASTATIN (LOVASTATIN) (UNKNOWN) [Concomitant]
  8. NTG (GLYCERTYL TRINITRATE) (UNKNOWN) [Concomitant]
  9. CALCIUM (CALCIUM) (UNKNOWN) [Concomitant]

REACTIONS (3)
  - Myocardial infarction [None]
  - Haemoglobin decreased [None]
  - Haematocrit decreased [None]
